FAERS Safety Report 9215496 (Version 1)
Quarter: 2013Q2

REPORT INFORMATION
  Report Type: Spontaneous
  Country: US (occurrence: US)
  Receive Date: 20130406
  Receipt Date: 20130406
  Transmission Date: 20140414
  Serious: No
  Sender: FDA-Public Use
  Company Number: US-009507513-1304USA001443

PATIENT
  Age: 15 Year
  Sex: Female

DRUGS (7)
  1. ASENAPINE MALEATE [Suspect]
     Indication: MAJOR DEPRESSION
     Dosage: 5 MG, BID, TOTAL OF 3 DOSES
     Route: 048
  2. ASENAPINE MALEATE [Suspect]
     Indication: SCHIZOPHRENIA
  3. ASENAPINE MALEATE [Suspect]
     Indication: OBSESSIVE-COMPULSIVE DISORDER
  4. ASENAPINE MALEATE [Suspect]
     Indication: GENERALISED ANXIETY DISORDER
  5. METHOHEXITAL [Concomitant]
     Indication: ELECTROCONVULSIVE THERAPY
     Dosage: 50-100 MG, UNK
  6. QUETIAPINE FUMARATE [Concomitant]
     Dosage: 100 MG, BID
  7. FLUOXETINE [Concomitant]
     Dosage: 40 MG, QD

REACTIONS (2)
  - Agitation [Unknown]
  - Vomiting [Unknown]
